FAERS Safety Report 10224019 (Version 2)
Quarter: 2014Q2

REPORT INFORMATION
  Report Type: Spontaneous
  Country: BE (occurrence: BE)
  Receive Date: 20140609
  Receipt Date: 20140616
  Transmission Date: 20141212
  Serious: Yes (Death, Hospitalization)
  Sender: FDA-Public Use
  Company Number: BE-NOVOPROD-412168

PATIENT
  Age: 73 Year
  Sex: Male
  Weight: 99 kg

DRUGS (6)
  1. VICTOZA [Suspect]
     Indication: TYPE 2 DIABETES MELLITUS
     Dosage: 1.8 MG
     Route: 058
     Dates: start: 201302, end: 20140218
  2. OLMETEC PLUS [Concomitant]
     Indication: HYPERTENSION
     Dosage: 20/12.5
     Route: 048
  3. ZOCOR [Concomitant]
     Indication: BLOOD CHOLESTEROL ABNORMAL
     Dosage: 20 MG
     Route: 048
  4. ASAFLOW [Concomitant]
     Dosage: 80 MG
     Route: 048
  5. ZYLORIC [Concomitant]
     Dosage: 300 MG
     Route: 048
  6. GLUCOPHAGE [Concomitant]
     Indication: DIABETES MELLITUS
     Dosage: UNK
     Route: 065

REACTIONS (2)
  - Death [Fatal]
  - Adenocarcinoma pancreas [Recovered/Resolved with Sequelae]
